FAERS Safety Report 11349673 (Version 1)
Quarter: 2015Q3

REPORT INFORMATION
  Report Type: Spontaneous
  Country: US (occurrence: US)
  Receive Date: 20150807
  Receipt Date: 20150807
  Transmission Date: 20151125
  Serious: Yes (Death)
  Sender: FDA-Public Use
  Company Number: US-ROCHE-ITM201505IM015443

PATIENT
  Age: 82 Year
  Sex: Male
  Weight: 72.64 kg

DRUGS (4)
  1. PIRFENIDONE [Suspect]
     Active Substance: PIRFENIDONE
     Route: 048
     Dates: start: 20150403
  2. ADCIRCA [Concomitant]
     Active Substance: TADALAFIL
  3. PIRFENIDONE [Suspect]
     Active Substance: PIRFENIDONE
     Indication: IDIOPATHIC PULMONARY FIBROSIS
     Route: 048
     Dates: start: 20150201, end: 20150401
  4. PREDNISONE. [Concomitant]
     Active Substance: PREDNISONE
     Indication: IDIOPATHIC PULMONARY FIBROSIS
     Route: 048

REACTIONS (6)
  - Respiratory failure [Fatal]
  - Gastrointestinal disorder [Unknown]
  - Lung infection [Unknown]
  - Drug ineffective [Unknown]
  - Drug intolerance [Unknown]
  - Peripheral swelling [Unknown]

NARRATIVE: CASE EVENT DATE: 201506
